FAERS Safety Report 9525743 (Version 2)
Quarter: 2013Q4

REPORT INFORMATION
  Report Type: Spontaneous
  Country: US (occurrence: US)
  Receive Date: 20130915
  Receipt Date: 20131011
  Transmission Date: 20140711
  Serious: No
  Sender: FDA-Public Use
  Company Number: US-TEVA-432498USA

PATIENT
  Sex: Male

DRUGS (4)
  1. CLARAVIS [Suspect]
     Dosage: SECOND COURSE
     Route: 048
  2. BECLOMETASONE DIPROPIONATE [Concomitant]
     Dosage: INHALER
  3. PROCATEROL HYDROCHLORIDE [Concomitant]
     Dosage: INHALER
  4. SALBUTAMOL [Concomitant]
     Dosage: INHALER

REACTIONS (2)
  - Dyspnoea [Recovering/Resolving]
  - Urticaria [Recovered/Resolved]
